FAERS Safety Report 15710859 (Version 1)
Quarter: 2018Q4

REPORT INFORMATION
  Report Type: Spontaneous
  Country: US (occurrence: US)
  Receive Date: 20181211
  Receipt Date: 20181211
  Transmission Date: 20190205
  Serious: No
  Sender: FDA-Public Use
  Company Number: US-SA-2018SA335567

PATIENT
  Age: 21 Year
  Sex: Female

DRUGS (1)
  1. DUPIXENT [Suspect]
     Active Substance: DUPILUMAB
     Indication: DERMATITIS ATOPIC
     Dosage: 600 MG, 1X
     Route: 058
     Dates: start: 20181128, end: 20181128

REACTIONS (4)
  - Oropharyngeal pain [Unknown]
  - Hypersensitivity [Unknown]
  - Tonsillar hypertrophy [Unknown]
  - Urticaria [Unknown]

NARRATIVE: CASE EVENT DATE: 20181129
